FAERS Safety Report 8414976-9 (Version None)
Quarter: 2012Q2

REPORT INFORMATION
  Report Type: 
  Country: None (occurrence: None)
  Receive Date: 20120530
  Receipt Date: 20120523
  Transmission Date: 20120825
  Serious: Yes (Hospitalization)
  Sender: FDA-Public Use
  Company Number: 2011SP046463

PATIENT
  Age: 24 Year
  Sex: Female
  Weight: 65.7716 kg

DRUGS (2)
  1. ADDERALL XR 10 [Concomitant]
  2. NUVARING [Suspect]
     Indication: CONTRACEPTION
     Dates: start: 20090601, end: 20091002

REACTIONS (20)
  - SINUS CONGESTION [None]
  - AFFECTIVE DISORDER [None]
  - PULMONARY EMBOLISM [None]
  - ACUTE SINUSITIS [None]
  - UNWANTED PREGNANCY [None]
  - SEXUAL ABUSE [None]
  - VULVOVAGINAL MYCOTIC INFECTION [None]
  - FALL [None]
  - INSOMNIA [None]
  - REFUSAL OF TREATMENT BY PATIENT [None]
  - LOSS OF CONSCIOUSNESS [None]
  - INJURY [None]
  - INFARCTION [None]
  - EPISTAXIS [None]
  - HAND FRACTURE [None]
  - TACHYCARDIA [None]
  - ANXIETY [None]
  - CONTUSION [None]
  - HEADACHE [None]
  - PAIN [None]
